FAERS Safety Report 19524530 (Version 1)
Quarter: 2021Q3

REPORT INFORMATION
  Report Type: Spontaneous
  Country: US (occurrence: US)
  Receive Date: 20210712
  Receipt Date: 20210712
  Transmission Date: 20211014
  Serious: No
  Sender: FDA-Public Use
  Company Number: None

PATIENT
  Sex: Female
  Weight: 52.2 kg

DRUGS (16)
  1. DULOXETINE. [Concomitant]
     Active Substance: DULOXETINE
  2. INDAPAMIDE. [Concomitant]
     Active Substance: INDAPAMIDE
  3. LORATADINE. [Concomitant]
     Active Substance: LORATADINE
  4. CAPECITABINE. [Suspect]
     Active Substance: CAPECITABINE
     Indication: NEOPLASM MALIGNANT
     Route: 048
  5. POTASSIUM CHLORIDE. [Concomitant]
     Active Substance: POTASSIUM CHLORIDE
  6. ASPIRIN. [Concomitant]
     Active Substance: ASPIRIN
  7. MECLIZINE [Concomitant]
     Active Substance: MECLIZINE HYDROCHLORIDE
  8. OMEPROZOLE [Concomitant]
     Active Substance: OMEPRAZOLE
  9. ONDANSETRON [Concomitant]
     Active Substance: ONDANSETRON
  10. FAMOTIDINE. [Concomitant]
     Active Substance: FAMOTIDINE
  11. FENTANYL. [Concomitant]
     Active Substance: FENTANYL
  12. SUCRALFATE. [Concomitant]
     Active Substance: SUCRALFATE
  13. VERAPAMIL [Concomitant]
     Active Substance: VERAPAMIL HYDROCHLORIDE
  14. VITAMIN D3 [Concomitant]
     Active Substance: CHOLECALCIFEROL
  15. OMEGA 3 [Concomitant]
     Active Substance: OMEGA-3 FATTY ACIDS
  16. ROSUVASTATIN. [Concomitant]
     Active Substance: ROSUVASTATIN

REACTIONS (2)
  - Bedridden [None]
  - Fatigue [None]
